FAERS Safety Report 16954149 (Version 2)
Quarter: 2019Q4

REPORT INFORMATION
  Report Type: Report from Study
  Country: EG (occurrence: EG)
  Receive Date: 20191023
  Receipt Date: 20191213
  Transmission Date: 20200122
  Serious: Yes (Hospitalization, Other)
  Sender: FDA-Public Use
  Company Number: NVSC2019EG012976

PATIENT
  Age: 54 Year
  Sex: Female

DRUGS (11)
  1. AFINITOR [Suspect]
     Active Substance: EVEROLIMUS
     Indication: BONE CANCER
  2. APIFORTYL [Concomitant]
     Indication: SUPPLEMENTATION THERAPY
     Dosage: UNK, QD (AFTER BREAKFAST)
     Route: 065
     Dates: start: 20191009
  3. MILGA [Concomitant]
     Indication: NERVE INJURY
     Dosage: UNK, QD (AFTER BREAKFAST)
     Route: 065
     Dates: start: 20191009
  4. ANALLERGE [Concomitant]
     Indication: PRODUCT USED FOR UNKNOWN INDICATION
     Dosage: UNK
     Route: 065
  5. AFINITOR [Suspect]
     Active Substance: EVEROLIMUS
     Indication: BREAST CANCER
     Dosage: 10 MG, QD
     Route: 048
     Dates: start: 20190318
  6. FEMARA [Suspect]
     Active Substance: LETROZOLE
     Indication: BONE CANCER
  7. CALCI PLUS [Concomitant]
     Indication: MINERAL SUPPLEMENTATION
     Dosage: UNK, QD
     Route: 065
     Dates: start: 20191009
  8. FEMARA [Suspect]
     Active Substance: LETROZOLE
     Indication: BREAST CANCER
     Dosage: 2.5 MG/DAY
     Route: 065
     Dates: start: 2017, end: 201902
  9. AROMASIN [Concomitant]
     Active Substance: EXEMESTANE
     Indication: PRODUCT USED FOR UNKNOWN INDICATION
     Dosage: 25 MG, QD
     Route: 065
  10. DEPOVIT B12 [Concomitant]
     Indication: NERVE INJURY
     Route: 065
  11. LASIX [Concomitant]
     Active Substance: FUROSEMIDE
     Indication: HYPERTENSION
     Dosage: 2 DF
     Route: 065

REACTIONS (15)
  - Noninfective gingivitis [Recovered/Resolved]
  - Pruritus [Not Recovered/Not Resolved]
  - Lip swelling [Not Recovered/Not Resolved]
  - Eye swelling [Not Recovered/Not Resolved]
  - Productive cough [Not Recovered/Not Resolved]
  - Glossitis [Recovered/Resolved]
  - Decreased appetite [Recovered/Resolved]
  - Metastases to bone [Unknown]
  - Decreased immune responsiveness [Unknown]
  - Blood pressure increased [Recovered/Resolved]
  - Influenza [Recovered/Resolved]
  - Nasopharyngitis [Recovered/Resolved]
  - Pyrexia [Recovered/Resolved]
  - Dyspnoea [Not Recovered/Not Resolved]
  - Bone pain [Not Recovered/Not Resolved]

NARRATIVE: CASE EVENT DATE: 20181207
